FAERS Safety Report 12770582 (Version 1)
Quarter: 2016Q3

REPORT INFORMATION
  Report Type: Spontaneous
  Country: GB (occurrence: GB)
  Receive Date: 20160922
  Receipt Date: 20160922
  Transmission Date: 20161109
  Serious: Yes (Hospitalization)
  Sender: FDA-Public Use
  Company Number: GB-TEVA-693303ACC

PATIENT
  Age: 73 Year
  Sex: Male

DRUGS (12)
  1. CLONAZEPAM. [Suspect]
     Active Substance: CLONAZEPAM
     Dosage: 750 MICROGRAM DAILY; AT NIGHT
     Route: 048
  2. CLONAZEPAM. [Suspect]
     Active Substance: CLONAZEPAM
     Dosage: 500 MICROGRAM DAILY; AT NIGHT
     Route: 048
  3. SENNA [Concomitant]
     Active Substance: SENNA LEAF\SENNOSIDES\SENNOSIDES A AND B
  4. TAMSULOSIN [Concomitant]
     Active Substance: TAMSULOSIN
  5. BISOPROLOL [Concomitant]
     Active Substance: BISOPROLOL
  6. PARACETAMOL [Concomitant]
     Active Substance: ACETAMINOPHEN
  7. CLONAZEPAM. [Suspect]
     Active Substance: CLONAZEPAM
     Dosage: 750 MICROGRAM DAILY; AT NIGHT
  8. WARFARIN SODIUM. [Concomitant]
     Active Substance: WARFARIN SODIUM
     Indication: ATRIAL FIBRILLATION
  9. OXYCODONE [Concomitant]
     Active Substance: OXYCODONE
     Dosage: 4 TIMES A DAY
  10. ISOSORBIDE MONONITRATE. [Concomitant]
     Active Substance: ISOSORBIDE MONONITRATE
     Dosage: 10 MILLIGRAM DAILY;
  11. PREGABALIN. [Concomitant]
     Active Substance: PREGABALIN
  12. OXYCONTIN [Concomitant]
     Active Substance: OXYCODONE HYDROCHLORIDE
     Dosage: 10 MILLIGRAM DAILY;

REACTIONS (2)
  - Hypotension [Recovered/Resolved]
  - Dizziness [Recovered/Resolved]
